FAERS Safety Report 17410557 (Version 1)
Quarter: 2020Q1

REPORT INFORMATION
  Report Type: Spontaneous
  Country: DE (occurrence: DE)
  Receive Date: 20200212
  Receipt Date: 20200212
  Transmission Date: 20200409
  Serious: Yes (Hospitalization)
  Sender: FDA-Public Use
  Company Number: NVSC2020DE033369

PATIENT
  Age: 55 Year
  Sex: Female
  Weight: 69 kg

DRUGS (19)
  1. CYNT [Concomitant]
     Indication: PRODUCT USED FOR UNKNOWN INDICATION
     Dosage: UNK
     Route: 065
  2. MYCOPHENOLATE MOFETIL. [Suspect]
     Active Substance: MYCOPHENOLATE MOFETIL
     Dosage: 1500 UNK, 2 SEPERATED DOSES 150 MG, BID
     Route: 048
     Dates: start: 20040312, end: 20040614
  3. CYCLOSPORINE. [Suspect]
     Active Substance: CYCLOSPORINE
     Dosage: 75 MG, QD,2 SEPERATED DOSES 150 MG, BID
     Route: 065
     Dates: start: 20090219
  4. URBASON [Suspect]
     Active Substance: METHYLPREDNISOLONE
     Dosage: 500 MG, QD, 2 SEPERATED DOSES 150 MG, BID
     Route: 042
     Dates: start: 20031227
  5. URBASON [Suspect]
     Active Substance: METHYLPREDNISOLONE
     Indication: RENAL TRANSPLANT
     Dosage: 2 SEPERATED DOSES 150 MG, BID
     Route: 048
     Dates: start: 20030117
  6. DACLIZUMAB [Suspect]
     Active Substance: DACLIZUMAB
     Dosage: 2 SEPERATED DOSES 150 MG, BID
     Route: 042
     Dates: start: 20040112, end: 20040224
  7. CYCLOSPORINE. [Suspect]
     Active Substance: CYCLOSPORINE
     Indication: RENAL TRANSPLANT
     Dosage: 2 SEPERATED DOSES 150 MG, BID
     Route: 048
  8. VALCYTE [Concomitant]
     Active Substance: VALGANCICLOVIR HYDROCHLORIDE
     Indication: PRODUCT USED FOR UNKNOWN INDICATION
     Dosage: UNK
     Route: 065
  9. VESDIL [Concomitant]
     Active Substance: RAMIPRIL
     Indication: PRODUCT USED FOR UNKNOWN INDICATION
     Dosage: UNK
     Route: 065
  10. RAMIPRIL. [Concomitant]
     Active Substance: RAMIPRIL
     Indication: PRODUCT USED FOR UNKNOWN INDICATION
     Dosage: UNK
     Route: 065
  11. PRAVASTATIN. [Concomitant]
     Active Substance: PRAVASTATIN
     Indication: PRODUCT USED FOR UNKNOWN INDICATION
     Dosage: UNK
     Route: 065
  12. CYCLOSPORINE. [Suspect]
     Active Substance: CYCLOSPORINE
     Dosage: 300 MG, QD
     Route: 065
     Dates: start: 20031227, end: 20040218
  13. URBASON [Suspect]
     Active Substance: METHYLPREDNISOLONE
     Dosage: 8 MG, QD, 2 SEPERATED DOSES 150 MG, BID
     Route: 048
  14. DACLIZUMAB [Suspect]
     Active Substance: DACLIZUMAB
     Indication: RENAL TRANSPLANT
     Dosage: 2 SEPERATED DOSES 150 MG, BID
     Route: 042
     Dates: start: 20031227
  15. NORVASC [Concomitant]
     Active Substance: AMLODIPINE BESYLATE
     Indication: PRODUCT USED FOR UNKNOWN INDICATION
     Dosage: UNK
     Route: 065
  16. BELOC ZOK [Concomitant]
     Active Substance: METOPROLOL SUCCINATE
     Indication: PRODUCT USED FOR UNKNOWN INDICATION
     Dosage: UNK
     Route: 065
  17. URBASON [Suspect]
     Active Substance: METHYLPREDNISOLONE
     Dosage: 2 SEPERATED DOSES 150 MG, BID
     Route: 048
     Dates: start: 20031230
  18. MYCOPHENOLATE MOFETIL. [Suspect]
     Active Substance: MYCOPHENOLATE MOFETIL
     Indication: RENAL TRANSPLANT
     Dosage: 2 SEPERATED DOSES 150 MG, BID
     Route: 048
     Dates: start: 20031227
  19. ESOMEPRAZOLE. [Concomitant]
     Active Substance: ESOMEPRAZOLE MAGNESIUM
     Indication: PRODUCT USED FOR UNKNOWN INDICATION
     Dosage: UNK
     Route: 065

REACTIONS (12)
  - Incisional drainage [Recovered/Resolved]
  - Dehydration [Recovered/Resolved]
  - Lymphocele [Recovered/Resolved]
  - Kidney anastomosis [Recovered/Resolved]
  - Ureteric stenosis [Recovered/Resolved]
  - Metabolic acidosis [Recovered/Resolved]
  - Renal tubular disorder [Recovered/Resolved]
  - Enterobacter sepsis [Recovered/Resolved]
  - Pain [Recovered/Resolved]
  - Acute kidney injury [Recovered/Resolved]
  - Cytomegalovirus infection [Recovered/Resolved]
  - Transplant dysfunction [Recovered/Resolved]

NARRATIVE: CASE EVENT DATE: 20040219
